FAERS Safety Report 23971364 (Version 1)
Quarter: 2024Q2

REPORT INFORMATION
  Report Type: Spontaneous
  Country: PL (occurrence: PL)
  Receive Date: 20240613
  Receipt Date: 20240613
  Transmission Date: 20240716
  Serious: Yes (Death, Hospitalization)
  Sender: FDA-Public Use
  Company Number: PL-TEVA-VS-3208083

PATIENT
  Age: 80 Year
  Sex: Female

DRUGS (1)
  1. METHOTREXATE [Suspect]
     Active Substance: METHOTREXATE
     Indication: Rheumatoid arthritis
     Dosage: HER PHYSICIAN PRESCRIBED 25MG METHOTREXATE INJECTIONS WITH A WRITTEN INSTRUCTION TO TAKE THE MEDI...
     Route: 065

REACTIONS (8)
  - Pulmonary infarction [Fatal]
  - Thrombocytopenia [Unknown]
  - Product prescribing issue [Fatal]
  - Leukopenia [Unknown]
  - Overdose [Fatal]
  - Toxicity to various agents [Fatal]
  - Respiratory failure [Fatal]
  - Oral infection [Fatal]
